FAERS Safety Report 11231637 (Version 1)
Quarter: 2015Q3

REPORT INFORMATION
  Report Type: Spontaneous
  Country: FR (occurrence: FR)
  Receive Date: 20150701
  Receipt Date: 20150701
  Transmission Date: 20151125
  Serious: Yes (Other)
  Sender: FDA-Public Use
  Company Number: FR-BAXALTA-2015BAX030779

PATIENT
  Age: 25 Year
  Sex: Male
  Weight: 53 kg

DRUGS (24)
  1. ADVATE [Suspect]
     Active Substance: ANTIHEMOPHILIC FACTOR, HUMAN RECOMBINANT
     Dosage: 30 IU/KG, UNK
     Route: 042
     Dates: start: 20150303, end: 20150303
  2. ADVATE [Suspect]
     Active Substance: ANTIHEMOPHILIC FACTOR, HUMAN RECOMBINANT
     Dosage: 30 IU/KG, UNK
     Route: 042
     Dates: start: 20150420, end: 20150420
  3. ADVATE [Suspect]
     Active Substance: ANTIHEMOPHILIC FACTOR, HUMAN RECOMBINANT
     Dosage: 30 IU/KG, UNK
     Route: 042
     Dates: start: 20150427, end: 20150427
  4. ADVATE [Suspect]
     Active Substance: ANTIHEMOPHILIC FACTOR, HUMAN RECOMBINANT
     Dosage: 30 IU/KG, UNK
     Route: 042
     Dates: start: 20150330, end: 20150330
  5. ADVATE [Suspect]
     Active Substance: ANTIHEMOPHILIC FACTOR, HUMAN RECOMBINANT
     Dosage: 30 IU/KG, UNK
     Route: 042
     Dates: start: 20150424, end: 20150424
  6. ADVATE [Suspect]
     Active Substance: ANTIHEMOPHILIC FACTOR, HUMAN RECOMBINANT
     Dosage: 30 IU/KG, UNK
     Route: 042
     Dates: start: 20150511, end: 20150511
  7. ADVATE [Suspect]
     Active Substance: ANTIHEMOPHILIC FACTOR, HUMAN RECOMBINANT
     Dosage: 30 IU/KG, UNK
     Route: 042
     Dates: start: 20150517, end: 20150517
  8. DAFALGAN [Concomitant]
     Active Substance: ACETAMINOPHEN
     Indication: PAIN
     Dosage: 1000 MG, ONE DOSAGE FORM
     Route: 048
  9. ADVATE [Suspect]
     Active Substance: ANTIHEMOPHILIC FACTOR, HUMAN RECOMBINANT
     Dosage: 30 IU/KG, UNK
     Route: 042
     Dates: start: 20150321, end: 20150321
  10. ADVATE [Suspect]
     Active Substance: ANTIHEMOPHILIC FACTOR, HUMAN RECOMBINANT
     Dosage: 30 IU/KG, UNK
     Route: 042
     Dates: start: 20150430, end: 20150430
  11. ADVATE [Suspect]
     Active Substance: ANTIHEMOPHILIC FACTOR, HUMAN RECOMBINANT
     Indication: FACTOR VIII DEFICIENCY
     Dosage: 30 IU/KG, UNK
     Route: 042
     Dates: start: 20150217, end: 20150217
  12. ADVATE [Suspect]
     Active Substance: ANTIHEMOPHILIC FACTOR, HUMAN RECOMBINANT
     Indication: HAEMORRHAGE
     Dosage: 30 IU/KG, UNK
     Route: 042
     Dates: start: 20150218, end: 20150218
  13. ADVATE [Suspect]
     Active Substance: ANTIHEMOPHILIC FACTOR, HUMAN RECOMBINANT
     Indication: FACTOR VIII DEFICIENCY
     Dosage: 30 IU/KG, UNK
     Route: 042
     Dates: start: 20150217, end: 20150217
  14. ADVATE [Suspect]
     Active Substance: ANTIHEMOPHILIC FACTOR, HUMAN RECOMBINANT
     Indication: HAEMORRHAGE
     Dosage: 30 IU/KG, UNK
     Route: 042
     Dates: start: 20150218, end: 20150218
  15. ADVATE [Suspect]
     Active Substance: ANTIHEMOPHILIC FACTOR, HUMAN RECOMBINANT
     Indication: FACTOR VIII DEFICIENCY
     Dosage: 30 IU/KG, UNK
     Route: 042
     Dates: start: 20150403, end: 20150403
  16. ADVATE [Suspect]
     Active Substance: ANTIHEMOPHILIC FACTOR, HUMAN RECOMBINANT
     Dosage: 30 IU/KG, UNK
     Route: 042
     Dates: start: 20150417, end: 20150417
  17. TRAMADOL. [Concomitant]
     Active Substance: TRAMADOL
     Indication: PAIN
     Dosage: 50MILLIGRAM
     Route: 048
  18. ADVATE [Suspect]
     Active Substance: ANTIHEMOPHILIC FACTOR, HUMAN RECOMBINANT
     Dosage: 30 IU/KG, UNK
     Route: 042
     Dates: start: 20150321, end: 20150321
  19. ADVATE [Suspect]
     Active Substance: ANTIHEMOPHILIC FACTOR, HUMAN RECOMBINANT
     Indication: PROPHYLAXIS
     Dosage: 30 IU/KG, UNK
     Route: 042
     Dates: start: 20150403, end: 20150403
  20. ADVATE [Suspect]
     Active Substance: ANTIHEMOPHILIC FACTOR, HUMAN RECOMBINANT
     Dosage: 30 IU/KG, UNK
     Route: 042
     Dates: start: 20150410, end: 20150410
  21. ADVATE [Suspect]
     Active Substance: ANTIHEMOPHILIC FACTOR, HUMAN RECOMBINANT
     Dosage: 30 IU/KG, UNK
     Route: 042
     Dates: start: 20150504, end: 20150504
  22. ADVATE [Suspect]
     Active Substance: ANTIHEMOPHILIC FACTOR, HUMAN RECOMBINANT
     Dosage: 30 IU/KG, UNK
     Route: 042
     Dates: start: 20150303, end: 20150303
  23. ADVATE [Suspect]
     Active Substance: ANTIHEMOPHILIC FACTOR, HUMAN RECOMBINANT
     Dosage: 30 IU/KG, UNK
     Route: 042
     Dates: start: 20150330, end: 20150330
  24. ADVATE [Suspect]
     Active Substance: ANTIHEMOPHILIC FACTOR, HUMAN RECOMBINANT
     Dosage: 30 IU/KG, UNK
     Route: 042
     Dates: start: 20150507, end: 20150507

REACTIONS (1)
  - Factor VIII inhibition [Not Recovered/Not Resolved]

NARRATIVE: CASE EVENT DATE: 20150521
